FAERS Safety Report 11461672 (Version 1)
Quarter: 2015Q3

REPORT INFORMATION
  Report Type: Spontaneous
  Country: US (occurrence: US)
  Receive Date: 20150831
  Receipt Date: 20150831
  Transmission Date: 20151125
  Serious: No
  Sender: FDA-Public Use
  Company Number: US-ELI_LILLY_AND_COMPANY-US200908004397

PATIENT
  Sex: Male

DRUGS (4)
  1. PRINIVIL [Concomitant]
     Active Substance: LISINOPRIL
  2. CYMBALTA [Suspect]
     Active Substance: DULOXETINE HYDROCHLORIDE
     Indication: NEURALGIA
     Dosage: 30 MG, DAILY (1/D)
     Dates: start: 200906
  3. LYRICA [Concomitant]
     Active Substance: PREGABALIN
  4. MODURETIC 5-50 [Concomitant]
     Active Substance: AMILORIDE HYDROCHLORIDE\HYDROCHLOROTHIAZIDE

REACTIONS (2)
  - Intentional product misuse [Unknown]
  - Carcinoembryonic antigen increased [Unknown]
